FAERS Safety Report 9649440 (Version 1)
Quarter: 2013Q4

REPORT INFORMATION
  Report Type: Spontaneous
  Country: US (occurrence: US)
  Receive Date: 20131028
  Receipt Date: 20131028
  Transmission Date: 20140711
  Serious: No
  Sender: FDA-Public Use
  Company Number: US-BAYER-2013-129042

PATIENT
  Age: 73 Year
  Sex: Female
  Weight: 95.24 kg

DRUGS (5)
  1. ALEVE CAPLET [Suspect]
     Route: 048
  2. ALEVE CAPLET [Suspect]
     Dosage: 12 DF, ONCE
     Route: 048
     Dates: start: 20131017, end: 20131017
  3. ASPIRIN [Concomitant]
     Indication: ISCHAEMIC HEART DISEASE PROPHYLAXIS
     Dosage: 1 DF, UNK
  4. LOSARTAN [Concomitant]
  5. LOVASTATIN [Concomitant]

REACTIONS (3)
  - Extra dose administered [None]
  - Feeling abnormal [None]
  - Abdominal pain upper [Not Recovered/Not Resolved]
